FAERS Safety Report 5468383-1 (Version None)
Quarter: 2007Q3

REPORT INFORMATION
  Report Type: 
  Country: None (occurrence: None)
  Receive Date: 20070924
  Receipt Date: 20070918
  Transmission Date: 20080115
  Serious: Yes (Other)
  Sender: FDA-Public Use
  Company Number: E2020-01642-CLI-AR

PATIENT
  Age: 71 Year
  Sex: Female

DRUGS (7)
  1. ARICEPT [Suspect]
     Indication: DEMENTIA ALZHEIMER'S TYPE
     Dosage: 10 MG, 1 IN 1 D, ORAL
     Route: 048
     Dates: start: 20070502, end: 20070906
  2. ATENOLOL [Suspect]
     Indication: HYPERTENSION
     Dosage: 10 MG, 2 IN 1 D, ORAL
     Route: 048
     Dates: start: 20070807, end: 20070912
  3. CLONAZEPAM [Concomitant]
  4. OMEPRAZOLE [Concomitant]
  5. ACETYLSALICYLIC ACID SRT [Concomitant]
  6. AMOXICILLIN [Concomitant]
  7. IBUPROFEN [Concomitant]

REACTIONS (4)
  - BRONCHITIS [None]
  - BRONCHOSPASM [None]
  - HYPERTENSION [None]
  - SOMNOLENCE [None]
